FAERS Safety Report 8827506 (Version 3)
Quarter: 2012Q4

REPORT INFORMATION
  Report Type: Report from Study
  Country: CA (occurrence: CA)
  Receive Date: 20121005
  Receipt Date: 20121022
  Transmission Date: 20130627
  Serious: Yes (Death, Hospitalization, Other)
  Sender: FDA-Public Use
  Company Number: CA-ABBOTT-12P-028-0990628-00

PATIENT
  Age: 69 None
  Sex: Male
  Weight: 81 kg

DRUGS (8)
  1. HUMIRA [Suspect]
     Route: 058
     Dates: start: 20110706, end: 201208
  2. ATORVASTATIN [Concomitant]
     Indication: PRODUCT USED FOR UNKNOWN INDICATION
  3. LEFLUNOMIDE [Concomitant]
     Indication: PRODUCT USED FOR UNKNOWN INDICATION
  4. FUROSEMIDE [Concomitant]
     Indication: PRODUCT USED FOR UNKNOWN INDICATION
  5. METOPROLOL [Concomitant]
     Indication: PRODUCT USED FOR UNKNOWN INDICATION
  6. SPIRONOLACTONE [Concomitant]
     Indication: PRODUCT USED FOR UNKNOWN INDICATION
  7. HYDROXYCHLOROQUINE [Concomitant]
     Indication: PRODUCT USED FOR UNKNOWN INDICATION
  8. ASA [Concomitant]
     Indication: PRODUCT USED FOR UNKNOWN INDICATION

REACTIONS (9)
  - Coronary artery bypass [Unknown]
  - Cardiac failure [Unknown]
  - Pneumonia [Unknown]
  - Pneumonia [Fatal]
  - Respiratory failure [Fatal]
  - Cardiac failure [Fatal]
  - Acute respiratory distress syndrome [Fatal]
  - Renal failure acute [Fatal]
  - Ejection fraction abnormal [Unknown]
